FAERS Safety Report 5737100-X (Version None)
Quarter: 2008Q2

REPORT INFORMATION
  Report Type: 
  Country: None (occurrence: None)
  Receive Date: 20080514
  Receipt Date: 20080505
  Transmission Date: 20081010
  Serious: Yes (Hospitalization)
  Sender: FDA-Public Use
  Company Number: BR-BAYER-200813801LA

PATIENT
  Age: 19 Year
  Sex: Female
  Weight: 57 kg

DRUGS (4)
  1. YASMIN [Suspect]
     Indication: ORAL CONTRACEPTION
     Route: 048
     Dates: start: 20051001, end: 20071001
  2. YASMIN [Suspect]
     Route: 048
     Dates: start: 20080419
  3. BUSONID [Concomitant]
     Indication: RHINITIS
     Route: 045
     Dates: start: 20071101
  4. BUSCOPAN [Concomitant]
     Indication: PELVIC PAIN
     Route: 048
     Dates: start: 20080419

REACTIONS (4)
  - ALOPECIA [None]
  - MENORRHAGIA [None]
  - PRE-EXISTING CONDITION IMPROVED [None]
  - UTERINE LEIOMYOMA [None]
